FAERS Safety Report 5898245-7 (Version None)
Quarter: 2008Q3

REPORT INFORMATION
  Report Type: 
  Country: None (occurrence: None)
  Receive Date: 20080925
  Receipt Date: 20070801
  Transmission Date: 20090109
  Serious: No
  Sender: FDA-Public Use
  Company Number: A0667689A

PATIENT
  Sex: Female

DRUGS (3)
  1. WELLBUTRIN XL [Suspect]
     Dosage: 300MG PER DAY
     Route: 048
     Dates: start: 20070712
  2. BLOOD PRESSURE MEDICATION [Concomitant]
  3. KLONOPIN [Concomitant]

REACTIONS (2)
  - HEADACHE [None]
  - ORGASM ABNORMAL [None]
